FAERS Safety Report 16988662 (Version 1)
Quarter: 2019Q4

REPORT INFORMATION
  Report Type: Spontaneous
  Country: US (occurrence: US)
  Receive Date: 20191104
  Receipt Date: 20191104
  Transmission Date: 20200122
  Serious: No
  Sender: FDA-Public Use
  Company Number: US-MYLANLABS-2019M1099570

PATIENT
  Age: 37 Year
  Sex: Female
  Weight: 45 kg

DRUGS (4)
  1. EMSAM [Suspect]
     Active Substance: SELEGILINE
     Indication: ANXIETY
  2. EMSAM [Suspect]
     Active Substance: SELEGILINE
     Indication: DEPRESSION
     Dosage: 1 DOSAGE FORM, QD
     Route: 062
  3. EMSAM [Suspect]
     Active Substance: SELEGILINE
     Indication: PANIC DISORDER
  4. BUPROPION HCL [Concomitant]
     Active Substance: BUPROPION HYDROCHLORIDE
     Dosage: 100 MILLIGRAM, QD

REACTIONS (3)
  - Blood pressure increased [Unknown]
  - Product prescribing error [Unknown]
  - Wrong technique in product usage process [Unknown]
